FAERS Safety Report 5723389-X (Version None)
Quarter: 2008Q2

REPORT INFORMATION
  Report Type: 
  Country: None (occurrence: None)
  Receive Date: 20080430
  Receipt Date: 20080423
  Transmission Date: 20081010
  Serious: Yes (Hospitalization)
  Sender: FDA-Public Use
  Company Number: FR-WYE-G01452108

PATIENT
  Sex: Male

DRUGS (3)
  1. EFFEXOR [Suspect]
     Indication: DEPRESSION
     Dosage: 150 MG TOTAL DAILY
     Route: 048
     Dates: start: 20070101, end: 20080101
  2. EFFEXOR [Suspect]
     Dosage: 225 MG TOTAL DAILY
     Route: 048
     Dates: start: 20080101, end: 20080301
  3. EFFEXOR [Suspect]
     Dosage: 150 MG TOTAL DAILY
     Route: 048
     Dates: start: 20080301

REACTIONS (3)
  - HYPERTENSION [None]
  - LEFT VENTRICULAR FAILURE [None]
  - METANEPHRINE URINE INCREASED [None]
